FAERS Safety Report 5383949-5 (Version None)
Quarter: 2007Q3

REPORT INFORMATION
  Report Type: 
  Country: None (occurrence: None)
  Receive Date: 20070711
  Receipt Date: 20070703
  Transmission Date: 20080115
  Serious: Yes (Other)
  Sender: FDA-Public Use
  Company Number: US-ROCHE-493918

PATIENT
  Age: 38 Year
  Sex: Female

DRUGS (1)
  1. XENICAL [Suspect]
     Indication: DRUG USE FOR UNKNOWN INDICATION
     Dosage: START DATE: UNSPECIFIED DATE IN 2002
     Route: 065
     Dates: end: 20020601

REACTIONS (2)
  - MYOCARDIAL INFARCTION [None]
  - WEIGHT INCREASED [None]
